FAERS Safety Report 7897360-6 (Version None)
Quarter: 2011Q4

REPORT INFORMATION
  Report Type: 
  Country: None (occurrence: None)
  Receive Date: 20111107
  Receipt Date: 20111102
  Transmission Date: 20120403
  Serious: Yes (Life-Threatening, Hospitalization, Other)
  Sender: FDA-Public Use
  Company Number: DE-SANOFI-AVENTIS-2011SA072568

PATIENT
  Age: 66 Year
  Sex: Female

DRUGS (14)
  1. OXALIPLATIN [Suspect]
     Indication: RECTAL CANCER
     Route: 042
     Dates: start: 20110531, end: 20110628
  2. RAMIPRIL [Concomitant]
     Indication: HYPERTENSION
     Route: 048
     Dates: end: 20110830
  3. LEVOTHYROXINE SODIUM [Concomitant]
     Indication: HYPOTHYROIDISM
  4. THERAPEUTIC RADIOPHARMACEUTICALS [Suspect]
     Indication: RECTAL CANCER
     Dosage: DOSE: 1.8 GY; FREQUENCY 5 IN 7 DAYS
     Route: 065
     Dates: start: 20110531, end: 20110706
  5. METOPROLOL TARTRATE [Concomitant]
     Indication: HYPERTENSION
     Route: 048
     Dates: end: 20110830
  6. DICLOFENAC SODIUM [Concomitant]
     Indication: PAIN
     Route: 048
     Dates: end: 20110830
  7. METOPROLOL TARTRATE [Concomitant]
     Route: 048
     Dates: start: 20110901
  8. RAMIPRIL [Concomitant]
     Route: 048
     Dates: start: 20110907
  9. PANTOPRAZOLE [Concomitant]
     Indication: PROPHYLAXIS
     Route: 048
  10. METOPROLOL TARTRATE [Concomitant]
     Route: 042
     Dates: start: 20110830, end: 20110901
  11. AMLODIPINE [Concomitant]
     Route: 048
     Dates: start: 20110907
  12. CAPECITABINE [Suspect]
     Indication: RECTAL CANCER
     Route: 048
     Dates: start: 20110531, end: 20110704
  13. AMLODIPINE [Concomitant]
     Indication: HYPERTENSION
     Route: 048
     Dates: end: 20110830
  14. AMIODARONE HCL [Concomitant]
     Route: 042
     Dates: start: 20110830, end: 20110831

REACTIONS (4)
  - ANASTOMOTIC LEAK [None]
  - SEPSIS [None]
  - WOUND INFECTION [None]
  - INFECTIOUS PERITONITIS [None]
